FAERS Safety Report 23277610 (Version 1)
Quarter: 2023Q4

REPORT INFORMATION
  Report Type: Spontaneous
  Country: US (occurrence: US)
  Receive Date: 20231208
  Receipt Date: 20231208
  Transmission Date: 20240109
  Serious: No
  Sender: FDA-Public Use
  Company Number: US-MYLANLABS-2023M1128556

PATIENT
  Sex: Female
  Weight: 47.63 kg

DRUGS (5)
  1. LATANOPROST [Suspect]
     Active Substance: LATANOPROST
     Indication: Product used for unknown indication
     Dosage: UNK
     Route: 047
  2. ELIQUIS [Concomitant]
     Active Substance: APIXABAN
     Indication: Atrial fibrillation
     Dosage: 2.5 MILLIGRAM, BID (OVER 2 YEARS)
     Route: 048
  3. LISINOPRIL [Concomitant]
     Active Substance: LISINOPRIL
     Indication: Blood pressure abnormal
     Dosage: 2.5 MILLIGRAM, QD (FOR COUPLE OF YEARS)
     Route: 065
  4. SYNTHROID [Concomitant]
     Active Substance: LEVOTHYROXINE SODIUM
     Indication: Product used for unknown indication
     Dosage: 75 MILLIGRAM, QD (FOR 45 YEARS)
     Route: 065
  5. DORZOLAMIDE [Concomitant]
     Active Substance: DORZOLAMIDE
     Indication: Product used for unknown indication
     Dosage: UNK
     Route: 047

REACTIONS (2)
  - Asthenia [Not Recovered/Not Resolved]
  - Dizziness [Not Recovered/Not Resolved]
